FAERS Safety Report 6381756-8 (Version None)
Quarter: 2009Q3

REPORT INFORMATION
  Report Type: 
  Country: None (occurrence: None)
  Receive Date: 20090930
  Receipt Date: 20090922
  Transmission Date: 20100115
  Serious: Yes (Hospitalization)
  Sender: FDA-Public Use
  Company Number: PHHO2008US15255

PATIENT
  Sex: Male
  Weight: 83 kg

DRUGS (26)
  1. RAD 666 RAD+TAB [Suspect]
     Indication: METASTATIC RENAL CELL CARCINOMA
     Dosage: 10 MG, QD
     Route: 048
     Dates: start: 20080920, end: 20081115
  2. RAD 666 RAD+TAB [Suspect]
     Dosage: 10 MG, QD
     Route: 048
     Dates: start: 20081117, end: 20081212
  3. RAD 666 RAD+TAB [Suspect]
     Dosage: 10 MG, QD
     Route: 048
     Dates: start: 20081222, end: 20081227
  4. REGLAN [Concomitant]
  5. KYTRIL [Concomitant]
  6. LISINOPRIL [Concomitant]
  7. ASPIRIN [Concomitant]
  8. GLIPIZIDE [Concomitant]
  9. LORATADINE [Concomitant]
  10. SIMVASTATIN [Concomitant]
  11. PATANOL [Concomitant]
  12. VITAMIN B-12 [Concomitant]
  13. ALLOPURINOL [Concomitant]
  14. FISH OIL [Concomitant]
  15. MAGNESIUM OXIDE [Concomitant]
  16. STOOL SOFTENER [Concomitant]
  17. SENOKOT [Concomitant]
  18. TYLENOL (CAPLET) [Concomitant]
  19. ANTINEOPLASTIC AGENTS [Concomitant]
  20. PAVATINE [Concomitant]
  21. FLONASE [Concomitant]
  22. INSULIN [Concomitant]
  23. METOCLOPRAMIDE [Concomitant]
  24. IMODIUM [Concomitant]
  25. NEXIUM [Concomitant]
  26. CARTROL [Concomitant]

REACTIONS (32)
  - ABDOMINAL ADHESIONS [None]
  - ABDOMINAL DISTENSION [None]
  - ABDOMINAL PAIN [None]
  - ASCITES [None]
  - ASTHENIA [None]
  - BLOOD GLUCOSE DECREASED [None]
  - BLOOD GLUCOSE INCREASED [None]
  - CHILLS [None]
  - CHOLECYSTITIS [None]
  - COLITIS [None]
  - DECREASED APPETITE [None]
  - DEHYDRATION [None]
  - DIARRHOEA [None]
  - DIVERTICULUM [None]
  - FLUID OVERLOAD [None]
  - GALLBLADDER DISORDER [None]
  - GASTRITIS [None]
  - GASTROINTESTINAL DISORDER [None]
  - GASTROINTESTINAL INFECTION [None]
  - HYPOPHAGIA [None]
  - HYPOTENSION [None]
  - INTESTINAL OBSTRUCTION [None]
  - LAPAROTOMY [None]
  - LEUKOCYTOSIS [None]
  - NASOPHARYNGITIS [None]
  - NAUSEA [None]
  - PANCREATIC ATROPHY [None]
  - PLEURAL EFFUSION [None]
  - PNEUMONIA [None]
  - PYREXIA [None]
  - RENAL FAILURE ACUTE [None]
  - VOMITING [None]
